FAERS Safety Report 16212826 (Version 1)
Quarter: 2019Q2

REPORT INFORMATION
  Report Type: Spontaneous
  Country: US (occurrence: US)
  Receive Date: 20190418
  Receipt Date: 20190418
  Transmission Date: 20190711
  Serious: No
  Sender: FDA-Public Use
  Company Number: US-ASTELLAS-2018US049293

PATIENT
  Age: 54 Year
  Sex: Female

DRUGS (1)
  1. LEXISCAN [Suspect]
     Active Substance: REGADENOSON
     Indication: PRODUCT USED FOR UNKNOWN INDICATION
     Dosage: 400 MCG/5ML, UNKNOWN FREQ.
     Route: 042
     Dates: start: 20181109

REACTIONS (2)
  - Injection site pain [Unknown]
  - Injection site extravasation [Unknown]
